FAERS Safety Report 6614541-X (Version None)
Quarter: 2010Q1

REPORT INFORMATION
  Report Type: 
  Country: None (occurrence: None)
  Receive Date: 20100304
  Receipt Date: 20100304
  Transmission Date: 20100710
  Serious: Yes (Hospitalization)
  Sender: FDA-Public Use
  Company Number: None

PATIENT
  Age: 82 Year
  Sex: Female
  Weight: 48.7 kg

DRUGS (1)
  1. VIMPAT [Suspect]
     Indication: TRIGEMINAL NEURALGIA
     Dosage: 100MG TWICE HS ONCE AM (300MG/DAY) PO
     Route: 048
     Dates: start: 20091210, end: 20100105

REACTIONS (1)
  - TACHYCARDIA [None]
